FAERS Safety Report 21259413 (Version 1)
Quarter: 2022Q3

REPORT INFORMATION
  Report Type: Spontaneous
  Country: US (occurrence: None)
  Receive Date: 20220825
  Receipt Date: 20220825
  Transmission Date: 20221027
  Serious: Yes (Hospitalization)
  Sender: FDA-Public Use
  Company Number: None

PATIENT
  Age: 82 Year
  Sex: Male
  Weight: 81 kg

DRUGS (2)
  1. CEFEPIME [Suspect]
     Active Substance: CEFEPIME HYDROCHLORIDE
     Indication: Bacteraemia
     Dosage: FREQUENCY : 3 TIMES A DAY;?
     Route: 042
     Dates: start: 20220809, end: 20220819
  2. CEFEPIME [Concomitant]
     Active Substance: CEFEPIME HYDROCHLORIDE
     Dates: start: 20220809, end: 20220820

REACTIONS (3)
  - Blood creatinine increased [None]
  - Mental status changes [None]
  - Disorientation [None]

NARRATIVE: CASE EVENT DATE: 20220820
